FAERS Safety Report 21179484 (Version 1)
Quarter: 2022Q3

REPORT INFORMATION
  Report Type: Report from Study
  Country: DE (occurrence: DE)
  Receive Date: 20220805
  Receipt Date: 20220805
  Transmission Date: 20221026
  Serious: No
  Sender: FDA-Public Use
  Company Number: DE-BAXTER-2022BAX016541

PATIENT
  Age: 57 Year
  Sex: Female
  Weight: 57 kg

DRUGS (4)
  1. AMINO ACIDS\DEXTROSE\ELECTROLYTES NOS\SOYBEAN OIL [Suspect]
     Active Substance: AMINO ACIDS\DEXTROSE\ELECTROLYTES NOS\SOYBEAN OIL
     Indication: Parenteral nutrition
     Dosage: 1085 MILLILITERS (ML) ONCE DAILY ADMINISTERED VIA INTRAVENOUS (CENTRAL VENOUS) ROUTE
     Route: 042
     Dates: start: 20220502, end: 20220802
  2. CERNEVIT [Suspect]
     Active Substance: VITAMINS
     Indication: Parenteral nutrition
     Dosage: 750 MILLIGRAMS (MG) ONCE DAILY ADMINISTERED VIA INTRAVENOUS (CENTRAL VENOUS) ROUTE
     Route: 042
     Dates: start: 20220502, end: 20220802
  3. ELECTROLYTES NOS\MINERALS [Suspect]
     Active Substance: ELECTROLYTES NOS\MINERALS
     Indication: Parenteral nutrition
     Dosage: 10 MILLILITERS (ML) ONCE DAILY ADMINISTERED VIA INTRAVENOUS (CENTRAL VENOUS) ROUTE
     Route: 042
     Dates: start: 20220502, end: 20220802
  4. UNSPECIFIED INGREDIENT [Suspect]
     Active Substance: UNSPECIFIED INGREDIENT
     Route: 065

REACTIONS (1)
  - Neoplasm progression [Unknown]
